FAERS Safety Report 6085004-8 (Version None)
Quarter: 2009Q1

REPORT INFORMATION
  Report Type: 
  Country: None (occurrence: None)
  Receive Date: 20090220
  Receipt Date: 20090210
  Transmission Date: 20090719
  Serious: Yes (Other)
  Sender: FDA-Public Use
  Company Number: US-AMGEN-QUU333182

PATIENT
  Sex: Female

DRUGS (3)
  1. ENBREL [Suspect]
     Indication: RHEUMATOID ARTHRITIS
     Route: 058
     Dates: start: 20000101
  2. UNSPECIFIED ANTIBIOTIC [Concomitant]
  3. UNSPECIFIED MEDICATION [Concomitant]

REACTIONS (10)
  - CORNEAL OPACITY [None]
  - DIARRHOEA [None]
  - DYSPHONIA [None]
  - HERPES ZOSTER [None]
  - HYPOAESTHESIA [None]
  - HYPOAESTHESIA EYE [None]
  - INJECTION SITE IRRITATION [None]
  - NASAL CONGESTION [None]
  - SINUSITIS [None]
  - THROAT IRRITATION [None]
